FAERS Safety Report 4762666-6 (Version None)
Quarter: 2005Q3

REPORT INFORMATION
  Report Type: 
  Country: None (occurrence: None)
  Receive Date: 20050902
  Receipt Date: 20050502
  Transmission Date: 20060218
  Serious: Yes (Other)
  Sender: FDA-Public Use
  Company Number: 2005S1002043

PATIENT
  Age: 75 Year
  Sex: Female
  Weight: 61.2356 kg

DRUGS (22)
  1. FENTANYL [Suspect]
     Indication: POLYNEUROPATHY
     Dosage: 75 MCG;Q3D;TDER
     Dates: start: 20050201
  2. FENTANYL [Suspect]
  3. AMIT/KETAM/GABAPEN OINTMENT [Concomitant]
  4. BISOPROLOL FUMARATE AND HYDROCHLOROTHIAZIDE [Concomitant]
  5. TRIAMTERENE AND HYDROCHLOROTHIAZIDE [Concomitant]
  6. ASPIRIN [Concomitant]
  7. LEVOTHYROXINE SODIUM [Concomitant]
  8. TOPIRAMATE [Concomitant]
  9. CODEINE PHOSPHATE/PARACETAMOL [Concomitant]
  10. ROSIGLITAZONE MALEATE [Concomitant]
  11. QUININE SULFATE [Concomitant]
  12. POTASSIUM CHLORIDE [Concomitant]
  13. EZETIMIBE [Concomitant]
  14. RISEDRONATE SODIUM [Concomitant]
  15. ERGOCALCIFEROL/CALCIUM CITRATE [Concomitant]
  16. GINKGO BILOBA EXTRACT [Concomitant]
  17. ASCORBIC ACID/MANGANESE/CHONDROITIN SULFATE/GLUCOSAMINE SULFATE [Concomitant]
  18. FISH OIL [Concomitant]
  19. VITAMIN B COMPLEX CAP [Concomitant]
  20. LOMOTIL [Concomitant]
  21. LOPERAMIDE HYDROCHLORIDE [Concomitant]
  22. FAMOTIDINE [Concomitant]

REACTIONS (1)
  - DRUG EFFECT DECREASED [None]
